FAERS Safety Report 8883200 (Version 1)
Quarter: 2012Q4

REPORT INFORMATION
  Report Type: 
  Country: None (occurrence: US)
  Receive Date: 20121102
  Receipt Date: 20121102
  Transmission Date: 20130627
  Serious: No
  Sender: FDA-Public Use
  Company Number: US-ABBOTT-12P-163-0992991-00

PATIENT
  Sex: Female

DRUGS (5)
  1. BIAXIN [Suspect]
     Indication: SINUSITIS
  2. QUINAPRIL [Concomitant]
     Indication: HYPERTENSION
     Route: 048
     Dates: end: 20120801
  3. LEVOTHYROXINE [Concomitant]
     Indication: HYPOTHYROIDISM
  4. HUMALOG [Concomitant]
     Indication: DIABETES MELLITUS
  5. ATORVASTATIN [Concomitant]
     Indication: BLOOD CHOLESTEROL

REACTIONS (1)
  - Cough [Not Recovered/Not Resolved]
